FAERS Safety Report 24422727 (Version 5)
Quarter: 2025Q1

REPORT INFORMATION
  Report Type: Spontaneous
  Country: DE (occurrence: DE)
  Receive Date: 20241010
  Receipt Date: 20250212
  Transmission Date: 20250409
  Serious: Yes (Hospitalization)
  Sender: ROCHE
  Company Number: DE-ROCHE-10000097335

PATIENT
  Age: 86 Year
  Sex: Female
  Weight: 51 kg

DRUGS (2)
  1. VABYSMO [Suspect]
     Active Substance: FARICIMAB-SVOA
     Indication: Neovascular age-related macular degeneration
     Route: 050
     Dates: start: 20230630, end: 20240829
  2. EYLEA [Concomitant]
     Active Substance: AFLIBERCEPT

REACTIONS (12)
  - Staphylococcal infection [Unknown]
  - Retinal injury [Unknown]
  - Eye pain [Unknown]
  - Lacrimation increased [Unknown]
  - Fatigue [Unknown]
  - Visual impairment [Unknown]
  - Herpes zoster [Unknown]
  - Endophthalmitis [Recovered/Resolved]
  - Visual acuity reduced [Unknown]
  - Corneal disorder [Unknown]
  - Drug intolerance [Unknown]
  - Blindness [Unknown]

NARRATIVE: CASE EVENT DATE: 20240831
